FAERS Safety Report 23872745 (Version 1)
Quarter: 2024Q2

REPORT INFORMATION
  Report Type: Spontaneous
  Country: EG (occurrence: EG)
  Receive Date: 20240520
  Receipt Date: 20240520
  Transmission Date: 20240716
  Serious: Yes (Other)
  Sender: FDA-Public Use
  Company Number: EG-ASTELLAS-2024US014119

PATIENT
  Age: 17 Year
  Sex: Female

DRUGS (2)
  1. XOSPATA [Suspect]
     Active Substance: GILTERITINIB
     Indication: Acute myeloid leukaemia
     Dosage: 40 MG, ONCE DAILY (LOW DOSE)
     Route: 065
  2. XOSPATA [Suspect]
     Active Substance: GILTERITINIB
     Indication: FLT3 gene mutation
     Dosage: 120 MG, ONCE DAILY (INCREASED DOSE)
     Route: 065

REACTIONS (3)
  - Acute myeloid leukaemia recurrent [Unknown]
  - Off label use [Unknown]
  - Underdose [Unknown]
